FAERS Safety Report 7766277-X (Version None)
Quarter: 2011Q3

REPORT INFORMATION
  Report Type: 
  Country: None (occurrence: None)
  Receive Date: 20110922
  Receipt Date: 20110915
  Transmission Date: 20111222
  Serious: Yes (Hospitalization)
  Sender: FDA-Public Use
  Company Number: US-BIOGENIDEC-2011BI032704

PATIENT
  Age: 40 Year
  Sex: Male

DRUGS (1)
  1. TYSABRI [Suspect]
     Indication: MULTIPLE SCLEROSIS
     Route: 042
     Dates: start: 20110811, end: 20110811

REACTIONS (5)
  - PNEUMONIA [None]
  - MENINGITIS [None]
  - CONFUSIONAL STATE [None]
  - PERSONALITY CHANGE [None]
  - MULTIPLE SCLEROSIS [None]
